FAERS Safety Report 7241260-1 (Version None)
Quarter: 2011Q1

REPORT INFORMATION
  Report Type: 
  Country: None (occurrence: None)
  Receive Date: 20110124
  Receipt Date: 20110118
  Transmission Date: 20110831
  Serious: Yes (Other)
  Sender: FDA-Public Use
  Company Number: A0906902A

PATIENT
  Age: 37 Year
  Sex: Female

DRUGS (6)
  1. ADVAIR [Suspect]
     Indication: ASTHMA
     Dosage: 1PUFF TWICE PER DAY
     Route: 055
     Dates: start: 20040101
  2. CLARITIN [Concomitant]
  3. NEXIUM [Concomitant]
  4. RHINOCORT [Concomitant]
  5. SINGULAIR [Concomitant]
  6. PATANASE [Concomitant]

REACTIONS (3)
  - RESPIRATORY TRACT INFECTION [None]
  - MALAISE [None]
  - PNEUMONIA [None]
